FAERS Safety Report 6682711-0 (Version None)
Quarter: 2010Q2

REPORT INFORMATION
  Report Type: 
  Country: None (occurrence: None)
  Receive Date: 20100413
  Receipt Date: 20100409
  Transmission Date: 20101027
  Serious: Yes (Disabling)
  Sender: FDA-Public Use
  Company Number: SP02859

PATIENT
  Age: 55 Year
  Sex: Female

DRUGS (2)
  1. MOVIPREP [Suspect]
     Indication: BOWEL PREPARATION
     Dosage: (1 LIT, OVER TWO HOURS), ORAL
     Route: 048
     Dates: start: 20100311, end: 20100311
  2. MOVIPREP [Suspect]
     Indication: COLONOSCOPY
     Dosage: (1 LIT, OVER TWO HOURS), ORAL
     Route: 048
     Dates: start: 20100311, end: 20100311

REACTIONS (1)
  - APHASIA [None]
